FAERS Safety Report 19450814 (Version 1)
Quarter: 2021Q2

REPORT INFORMATION
  Report Type: Spontaneous
  Country: US (occurrence: US)
  Receive Date: 20210622
  Receipt Date: 20210622
  Transmission Date: 20210717
  Serious: No
  Sender: FDA-Public Use
  Company Number: US-MYLANLABS-2020M1086434

PATIENT
  Age: 90 Year
  Sex: Female
  Weight: 81 kg

DRUGS (2)
  1. WIXELA INHUB [Suspect]
     Active Substance: FLUTICASONE PROPIONATE\SALMETEROL XINAFOATE
     Indication: PRODUCT USED FOR UNKNOWN INDICATION
     Dosage: 250/50MCG, BID
     Route: 055
     Dates: start: 20201006
  2. PROVENTIL [Concomitant]
     Active Substance: ALBUTEROL
     Dosage: UNK

REACTIONS (3)
  - Oral pain [Unknown]
  - Device issue [Unknown]
  - Stomatitis [Unknown]

NARRATIVE: CASE EVENT DATE: 20201006
